FAERS Safety Report 5487259-7 (Version None)
Quarter: 2007Q4

REPORT INFORMATION
  Report Type: 
  Country: None (occurrence: None)
  Receive Date: 20071015
  Receipt Date: 20071008
  Transmission Date: 20080405
  Serious: Yes (Hospitalization)
  Sender: FDA-Public Use
  Company Number: 2006US000189

PATIENT
  Age: 68 Year
  Sex: Female

DRUGS (24)
  1. PROGRAF [Suspect]
     Indication: PROPHYLAXIS AGAINST TRANSPLANT REJECTION
     Dosage: 11 MG, BID, ORAL 5 MG, UID/QD 3 MG, BID 4 MG, BID
     Route: 048
     Dates: start: 20050425, end: 20050710
  2. PROGRAF [Suspect]
     Indication: PROPHYLAXIS AGAINST TRANSPLANT REJECTION
     Dosage: 11 MG, BID, ORAL 5 MG, UID/QD 3 MG, BID 4 MG, BID
     Route: 048
     Dates: start: 20050711
  3. PROGRAF [Suspect]
     Indication: PROPHYLAXIS AGAINST TRANSPLANT REJECTION
     Dosage: 11 MG, BID, ORAL 5 MG, UID/QD 3 MG, BID 4 MG, BID
     Route: 048
     Dates: start: 20050714
  4. MYCOPHENOLATE MOFETIL [Suspect]
     Indication: RENAL TRANSPLANT
     Dosage: 1000 MG, BID 1500 MG, BID 2000 MG, BID 500 MG, BID, ORAL
     Route: 048
     Dates: start: 20050209, end: 20050710
  5. MYCOPHENOLATE MOFETIL [Suspect]
     Indication: RENAL TRANSPLANT
     Dosage: 1000 MG, BID 1500 MG, BID 2000 MG, BID 500 MG, BID, ORAL
     Route: 048
     Dates: start: 20050711, end: 20050712
  6. MYCOPHENOLATE MOFETIL [Suspect]
     Indication: RENAL TRANSPLANT
     Dosage: 1000 MG, BID 1500 MG, BID 2000 MG, BID 500 MG, BID, ORAL
     Route: 048
     Dates: start: 20050713, end: 20050717
  7. MYCOPHENOLATE MOFETIL [Suspect]
     Indication: RENAL TRANSPLANT
     Dosage: 1000 MG, BID 1500 MG, BID 2000 MG, BID 500 MG, BID, ORAL
     Route: 048
     Dates: start: 20050718
  8. MEDROL [Suspect]
     Indication: PROPHYLAXIS AGAINST TRANSPLANT REJECTION
     Dosage: 24 MG
     Dates: start: 20050701
  9. NEPHROCAPS (FOLIC ACID, VITAMINS NOS) [Concomitant]
  10. SERTRALINE [Concomitant]
  11. ASPIRIN [Concomitant]
  12. ZOCOR [Concomitant]
  13. AVANDIA [Concomitant]
  14. XANAX [Concomitant]
  15. NOVOLOG [Concomitant]
  16. LANTUS [Concomitant]
  17. LISINOPRIL (LISINOPRIL DIHYDRATE) [Concomitant]
  18. FUROSEMIDE (FUROSEMIDE SODIUM) [Concomitant]
  19. ZETIA [Concomitant]
  20. BACTRIM DS [Concomitant]
  21. DARVON (DEXTROPROPOXYPHENE NAPSILATE) [Concomitant]
  22. PROTONIX [Concomitant]
  23. IMDUR [Concomitant]
  24. METOPROLOL TARTRATE [Concomitant]

REACTIONS (6)
  - ANAEMIA [None]
  - DEHYDRATION [None]
  - DISEASE RECURRENCE [None]
  - MUSCULAR WEAKNESS [None]
  - NAUSEA [None]
  - THROMBOCYTOPENIA [None]
